FAERS Safety Report 10996490 (Version 1)
Quarter: 2015Q2

REPORT INFORMATION
  Report Type: Spontaneous
  Country: US (occurrence: US)
  Receive Date: 20150408
  Receipt Date: 20150408
  Transmission Date: 20150821
  Serious: Yes (Other)
  Sender: FDA-Public Use
  Company Number: US-ASTRAZENECA-2015SE30869

PATIENT
  Sex: Female

DRUGS (3)
  1. LOT OF MEDICINES [Concomitant]
  2. ANASTROZOLE. [Suspect]
     Active Substance: ANASTROZOLE
     Route: 048
  3. INSULIN [Concomitant]
     Active Substance: INSULIN NOS
     Dosage: TWO TIMES A DAY

REACTIONS (4)
  - Breast cancer female [Unknown]
  - Renal cancer [Unknown]
  - Muscle spasms [Unknown]
  - Renal impairment [Unknown]
